FAERS Safety Report 7655411-8 (Version None)
Quarter: 2011Q3

REPORT INFORMATION
  Report Type: 
  Country: None (occurrence: None)
  Receive Date: 20110729
  Receipt Date: 20110715
  Transmission Date: 20111222
  Serious: Yes (Other)
  Sender: FDA-Public Use
  Company Number: 20110260

PATIENT
  Age: 42 Year
  Sex: Female

DRUGS (8)
  1. OXYCODONE HCL [Concomitant]
  2. CORTES [Concomitant]
  3. TOPAMAX [Concomitant]
  4. DEXAMETHASONE SODIUM PHOSPHATE [Suspect]
     Indication: ADDISON'S DISEASE
     Dosage: 4 ML - 4 TIMES PER MONTH INTRAMUSCULAR
     Route: 030
     Dates: start: 20050101, end: 20110301
  5. CYMBALTA [Concomitant]
  6. OXYCONTIN [Concomitant]
  7. VALIUM [Concomitant]
  8. PROMETHAZINE [Concomitant]

REACTIONS (11)
  - PRODUCT QUALITY ISSUE [None]
  - GASTRIC DISORDER [None]
  - ANGINA PECTORIS [None]
  - INCORRECT DOSE ADMINISTERED [None]
  - DIZZINESS [None]
  - ABDOMINAL PAIN UPPER [None]
  - ANGER [None]
  - NIGHTMARE [None]
  - COLD SWEAT [None]
  - ROAD TRAFFIC ACCIDENT [None]
  - INCORRECT DRUG ADMINISTRATION DURATION [None]
